FAERS Safety Report 4970418-7 (Version None)
Quarter: 2006Q2

REPORT INFORMATION
  Report Type: 
  Country: None (occurrence: None)
  Receive Date: 20060412
  Receipt Date: 20060410
  Transmission Date: 20061013
  Serious: Yes (Life-Threatening, Hospitalization, Other)
  Sender: FDA-Public Use
  Company Number: PHHO2006FR05790

PATIENT
  Age: 52 Year
  Sex: Male
  Weight: 73 kg

DRUGS (2)
  1. RAD [Suspect]
     Indication: RENAL TRANSPLANT
     Dosage: 0.75 MG, BID
     Route: 048
     Dates: start: 20060321
  2. NEORAL [Suspect]
     Indication: RENAL TRANSPLANT
     Dosage: 125 MG, BID
     Route: 048
     Dates: start: 20060321

REACTIONS (5)
  - ACUTE RESPIRATORY FAILURE [None]
  - HYPOTENSION [None]
  - PYREXIA [None]
  - SEPTIC SHOCK [None]
  - URINARY TRACT INFECTION [None]
